FAERS Safety Report 19745633 (Version 4)
Quarter: 2021Q3

REPORT INFORMATION
  Report Type: Spontaneous
  Country: US (occurrence: US)
  Receive Date: 20210825
  Receipt Date: 20210922
  Transmission Date: 20211014
  Serious: Yes (Death, Other)
  Sender: FDA-Public Use
  Company Number: NVSC2021US191475

PATIENT
  Age: 15 Year
  Sex: Male
  Weight: 112 kg

DRUGS (1)
  1. KYMRIAH [Suspect]
     Active Substance: TISAGENLECLEUCEL
     Indication: ACUTE LYMPHOCYTIC LEUKAEMIA
     Dosage: UNK, ONCE/SINGLE (0.7E8 CAR?POS VIABLET)
     Route: 041
     Dates: start: 20210811, end: 20210811

REACTIONS (10)
  - Acute lymphocytic leukaemia recurrent [Unknown]
  - Agitation [Unknown]
  - Disorientation [Unknown]
  - Acute lymphocytic leukaemia [Fatal]
  - Seizure [Unknown]
  - Immune effector cell-associated neurotoxicity syndrome [Unknown]
  - Blast cell count increased [Unknown]
  - Malignant neoplasm progression [Fatal]
  - Thrombocytopenia [Unknown]
  - White blood cell count increased [Unknown]

NARRATIVE: CASE EVENT DATE: 20210830
